FAERS Safety Report 7477301-6 (Version None)
Quarter: 2011Q2

REPORT INFORMATION
  Report Type: 
  Country: None (occurrence: None)
  Receive Date: 20110513
  Receipt Date: 20110503
  Transmission Date: 20111010
  Serious: No
  Sender: FDA-Public Use
  Company Number: US-BIOGENIDEC-2010BI031854

PATIENT
  Age: 56 Year
  Sex: Male

DRUGS (2)
  1. AVONEX [Concomitant]
     Indication: MULTIPLE SCLEROSIS
     Route: 030
     Dates: start: 20080101
  2. TYSABRI [Suspect]
     Indication: MULTIPLE SCLEROSIS
     Route: 042
     Dates: start: 20071012

REACTIONS (8)
  - VISUAL IMPAIRMENT [None]
  - LOSS OF CONTROL OF LEGS [None]
  - MULTIPLE SCLEROSIS [None]
  - COGNITIVE DISORDER [None]
  - MEMORY IMPAIRMENT [None]
  - DRUG INEFFECTIVE [None]
  - SKIN BURNING SENSATION [None]
  - MUSCULAR WEAKNESS [None]
